FAERS Safety Report 20716299 (Version 1)
Quarter: 2022Q2

REPORT INFORMATION
  Report Type: Spontaneous
  Country: US (occurrence: US)
  Receive Date: 20220416
  Receipt Date: 20220416
  Transmission Date: 20220721
  Serious: No
  Sender: FDA-Public Use
  Company Number: US-ALLERGAN-2203711US

PATIENT
  Sex: Female

DRUGS (7)
  1. LILETTA [Suspect]
     Active Substance: LEVONORGESTREL
     Indication: Contraception
     Dosage: 52 MG, SINGLE
     Route: 015
     Dates: start: 20211118, end: 20220125
  2. VRAYLAR [Concomitant]
     Active Substance: CARIPRAZINE
  3. FLUOXETINE [Concomitant]
     Active Substance: FLUOXETINE HYDROCHLORIDE
  4. LEVOTHYROXINE [Concomitant]
     Active Substance: LEVOTHYROXINE
  5. METFORMIN [Concomitant]
     Active Substance: METFORMIN HYDROCHLORIDE
  6. RIZATRIPTAN [Concomitant]
     Active Substance: RIZATRIPTAN
  7. TOPAMAX [Concomitant]
     Active Substance: TOPIRAMATE

REACTIONS (1)
  - Device expulsion [Recovered/Resolved]
